FAERS Safety Report 25126036 (Version 2)
Quarter: 2025Q2

REPORT INFORMATION
  Report Type: Spontaneous
  Country: US (occurrence: US)
  Receive Date: 20250326
  Receipt Date: 20250421
  Transmission Date: 20250716
  Serious: No
  Sender: KARYOPHARM THERAPEUTICS
  Company Number: US-KARYOPHARM-2025KPT100046

PATIENT

DRUGS (9)
  1. SELINEXOR [Suspect]
     Active Substance: SELINEXOR
     Indication: Plasma cell myeloma
     Route: 048
     Dates: start: 20250321, end: 2025
  2. ACYCLOVIR [Concomitant]
     Active Substance: ACYCLOVIR
  3. CARVEDILOL [Concomitant]
     Active Substance: CARVEDILOL
  4. DARZALEX [Concomitant]
     Active Substance: DARATUMUMAB
  5. DEXAMETHASONE [Concomitant]
     Active Substance: DEXAMETHASONE
  6. METOPROLOL [Concomitant]
     Active Substance: METOPROLOL
  7. NEOMYCIN [Concomitant]
     Active Substance: NEOMYCIN
  8. ASPIRIN [Concomitant]
     Active Substance: ASPIRIN
  9. XIFAXAN [Concomitant]
     Active Substance: RIFAXIMIN

REACTIONS (7)
  - Unresponsive to stimuli [Not Recovered/Not Resolved]
  - Asthenia [Recovering/Resolving]
  - Fatigue [Recovering/Resolving]
  - Nausea [Recovering/Resolving]
  - Vomiting [Unknown]
  - Glomerular filtration rate decreased [Unknown]
  - Diarrhoea [Unknown]

NARRATIVE: CASE EVENT DATE: 20250101
